FAERS Safety Report 8811006 (Version 1)
Quarter: 2012Q4

REPORT INFORMATION
  Report Type: Spontaneous
  Country: US (occurrence: None)
  Receive Date: 20120925
  Receipt Date: 20120925
  Transmission Date: 20130627
  Serious: Yes (Life-Threatening, Hospitalization, Disabling)
  Sender: FDA-Public Use
  Company Number: None

PATIENT
  Age: 54 Year
  Sex: Male
  Weight: 86.64 kg

DRUGS (2)
  1. ACTOS [Suspect]
     Indication: DIABETES
     Dosage: OVER YEAR OR YEARS 45 mg 1 daily
  2. METFORMIN [Suspect]
     Dosage: OVER YEAR OR YEARS 1000 MG 2 DAILY

REACTIONS (6)
  - Nausea [None]
  - Diarrhoea [None]
  - Haemorrhage [None]
  - Cholecystectomy [None]
  - Drug dispensing error [None]
  - Overdose [None]
